FAERS Safety Report 4909665-9 (Version None)
Quarter: 2006Q1

REPORT INFORMATION
  Report Type: 
  Country: None (occurrence: None)
  Receive Date: 20060213
  Receipt Date: 20050815
  Transmission Date: 20060701
  Serious: Yes (Hospitalization)
  Sender: FDA-Public Use
  Company Number: US-MERCK-0508USA02979

PATIENT
  Age: 78 Year
  Sex: Female
  Weight: 95 kg

DRUGS (7)
  1. VIOXX [Suspect]
     Indication: ARTHRITIS
     Route: 048
     Dates: start: 20001201, end: 20041002
  2. VIOXX [Suspect]
     Indication: OSTEOARTHRITIS
     Route: 048
     Dates: start: 20001201, end: 20041002
  3. ASPIRIN [Concomitant]
     Route: 048
  4. OCUVITE [Concomitant]
     Route: 048
  5. ZOCOR [Concomitant]
     Route: 048
  6. HYDROCHLOROTHIAZIDE [Concomitant]
     Route: 048
  7. LORTAB [Concomitant]
     Route: 065

REACTIONS (8)
  - ANAEMIA [None]
  - CHRONIC OBSTRUCTIVE PULMONARY DISEASE [None]
  - DIVERTICULUM [None]
  - HAEMORRHOIDS [None]
  - OCCULT BLOOD POSITIVE [None]
  - OSTEOARTHRITIS [None]
  - PULMONARY EMBOLISM [None]
  - SPINAL OSTEOARTHRITIS [None]
